FAERS Safety Report 20764839 (Version 1)
Quarter: 2022Q2

REPORT INFORMATION
  Report Type: Spontaneous
  Country: US (occurrence: US)
  Receive Date: 20220428
  Receipt Date: 20220428
  Transmission Date: 20220721
  Serious: No
  Sender: FDA-Public Use
  Company Number: US-PFIZER INC-202101453555

PATIENT
  Age: 72 Year

DRUGS (3)
  1. ALPRAZOLAM [Suspect]
     Active Substance: ALPRAZOLAM
     Dosage: UNK
  2. CELEBREX [Suspect]
     Active Substance: CELECOXIB
     Dosage: UNK
  3. NARDIL [Suspect]
     Active Substance: PHENELZINE SULFATE
     Dosage: UNK

REACTIONS (3)
  - Lacrimation increased [Unknown]
  - Sneezing [Unknown]
  - Hypersensitivity [Unknown]
